FAERS Safety Report 10747784 (Version 1)
Quarter: 2015Q1

REPORT INFORMATION
  Report Type: Report from Study
  Country: US (occurrence: None)
  Receive Date: 20150120
  Receipt Date: 20150120
  Transmission Date: 20150721
  Serious: No
  Sender: FDA-Public Use
  Company Number: AEGR001014

PATIENT
  Age: 33 Year
  Sex: Female
  Weight: 59.4 kg

DRUGS (12)
  1. JUXTAPID [Suspect]
     Active Substance: LOMITAPIDE MESYLATE
     Indication: TYPE IIA HYPERLIPIDAEMIA
     Dates: start: 20140624
  2. CARVEDILOL. [Concomitant]
     Active Substance: CARVEDILOL
  3. DESVENLAFAXINE. [Concomitant]
     Active Substance: DESVENLAFAXINE
  4. ZOLPIDEM [Concomitant]
     Active Substance: ZOLPIDEM\ZOLPIDEM TARTRATE
  5. ROSUVASTATIN [Concomitant]
     Active Substance: ROSUVASTATIN
  6. EZETIMIBE. [Concomitant]
     Active Substance: EZETIMIBE
  7. RAMIPRIL. [Concomitant]
     Active Substance: RAMIPRIL
  8. NAICIN [Concomitant]
  9. CILOSTAZOL. [Concomitant]
     Active Substance: CILOSTAZOL
  10. COLESEVELAM [Concomitant]
     Active Substance: COLESEVELAM
  11. CLOPIDOGREL [Concomitant]
     Active Substance: CLOPIDOGREL BISULFATE
  12. ASPIRIN (ACETYLSALICYLIC ACID) [Concomitant]
     Active Substance: ASPIRIN

REACTIONS (1)
  - Chest pain [None]

NARRATIVE: CASE EVENT DATE: 201409
